FAERS Safety Report 9738527 (Version 5)
Quarter: 2015Q4

REPORT INFORMATION
  Report Type: Report from Study
  Country: DE (occurrence: DE)
  Receive Date: 20131209
  Receipt Date: 20151016
  Transmission Date: 20160305
  Serious: Yes (Hospitalization)
  Sender: FDA-Public Use
  Company Number: DE-ROCHE-1224845

PATIENT
  Age: 78 Year
  Sex: Female
  Weight: 74 kg

DRUGS (12)
  1. MULTAQ [Concomitant]
     Active Substance: DRONEDARONE
     Indication: CARDIAC FAILURE
     Route: 048
  2. MACROGOL [Concomitant]
     Active Substance: POLYETHYLENE GLYCOLS
     Indication: CONSTIPATION
     Dosage: FREQUENCY- AS REQURIED
     Route: 048
  3. XARELTO [Concomitant]
     Active Substance: RIVAROXABAN
     Indication: CORONARY ARTERY DISEASE
     Route: 048
  4. BEVACIZUMAB [Suspect]
     Active Substance: BEVACIZUMAB
     Indication: BREAST CANCER
  5. PACLITAXEL. [Suspect]
     Active Substance: PACLITAXEL
     Indication: OVARIAN CANCER
     Dosage: LAST DOSE PRIOR TO FIRST EPISODE OF EVENT ON 07/MAY/2013 AND ?LAST DOSE PRIOR TO SECOND EPISODE OF E
     Route: 042
     Dates: start: 20130416, end: 20130528
  6. MACROGOL [Concomitant]
     Active Substance: POLYETHYLENE GLYCOLS
     Route: 048
  7. BEVACIZUMAB [Suspect]
     Active Substance: BEVACIZUMAB
     Indication: OVARIAN CANCER
     Dosage: LAST DOSE PRIOR TO FIRST EPISODE OF EVENT ON 07/MAY/2013 AND ?LAST DOSE PRIOR TO SECOND EPISODE OF E
     Route: 042
     Dates: start: 20130416, end: 20130528
  8. CARBOPLATIN. [Suspect]
     Active Substance: CARBOPLATIN
     Indication: OVARIAN CANCER
     Dosage: LAST DOSE PRIOR TO FIRST EPISODE OF EVENT ON 07/MAY/2013
     Route: 042
     Dates: start: 20130416, end: 20130416
  9. CARBOPLATIN. [Suspect]
     Active Substance: CARBOPLATIN
     Route: 042
     Dates: start: 20130507, end: 20130507
  10. MULTAQ [Concomitant]
     Active Substance: DRONEDARONE
     Route: 065
  11. PACLITAXEL. [Suspect]
     Active Substance: PACLITAXEL
     Indication: BREAST CANCER
     Dosage: LAST DOSE PRIOR TO FIRST EPISODE OF EVENT ON 07/MAY/2013 AND ?LAST DOSE PRIOR TO SECOND EPISODE OF E
     Route: 042
     Dates: start: 20130507, end: 20130507
  12. CARBOPLATIN. [Suspect]
     Active Substance: CARBOPLATIN
     Indication: BREAST CANCER
     Dosage: LAST DOSE PRIOR TO SECOND EPISODE OF EVENT ON 28/MAY/2013
     Route: 042
     Dates: start: 20130528, end: 20130528

REACTIONS (5)
  - General physical health deterioration [Recovered/Resolved]
  - Leukopenia [Recovered/Resolved]
  - Pyrexia [Recovered/Resolved]
  - Fatigue [Recovered/Resolved]
  - Pleural effusion [Recovered/Resolved]

NARRATIVE: CASE EVENT DATE: 20130512
